FAERS Safety Report 19307233 (Version 1)
Quarter: 2021Q2

REPORT INFORMATION
  Report Type: Report from Study
  Country: CA (occurrence: CA)
  Receive Date: 20210526
  Receipt Date: 20210526
  Transmission Date: 20210717
  Serious: Yes (Other)
  Sender: FDA-Public Use
  Company Number: CA-GLAXOSMITHKLINE-CACH2021021825

PATIENT
  Age: 38 Year
  Sex: Female

DRUGS (2)
  1. CELEBREX [Concomitant]
     Active Substance: CELECOXIB
     Indication: PRODUCT USED FOR UNKNOWN INDICATION
     Dosage: UNK
     Route: 048
  2. DICLOFENAC SODIUM. [Suspect]
     Active Substance: DICLOFENAC SODIUM
     Indication: PRODUCT USED FOR UNKNOWN INDICATION
     Dosage: 50 MG, BID
     Route: 048
     Dates: start: 20201207, end: 202104

REACTIONS (6)
  - Cystitis [Unknown]
  - Haematochezia [Unknown]
  - Drug ineffective [Unknown]
  - Pain [Unknown]
  - General physical health deterioration [Unknown]
  - Anxiety [Unknown]

NARRATIVE: CASE EVENT DATE: 2020
